FAERS Safety Report 7735602-8 (Version None)
Quarter: 2011Q3

REPORT INFORMATION
  Report Type: 
  Country: None (occurrence: None)
  Receive Date: 20110907
  Receipt Date: 20110831
  Transmission Date: 20111222
  Serious: Yes (Other)
  Sender: FDA-Public Use
  Company Number: JP-MERCK-1109USA00263

PATIENT

DRUGS (2)
  1. ALLEGRA [Suspect]
     Route: 048
  2. STROMECTOL [Suspect]
     Route: 048

REACTIONS (1)
  - HEPATIC ENCEPHALOPATHY [None]
